FAERS Safety Report 22004025 (Version 3)
Quarter: 2023Q2

REPORT INFORMATION
  Report Type: Spontaneous
  Country: JP (occurrence: JP)
  Receive Date: 20230217
  Receipt Date: 20230410
  Transmission Date: 20230722
  Serious: Yes (Hospitalization)
  Sender: FDA-Public Use
  Company Number: JP-002147023-NVSJ2023JP003411

PATIENT
  Sex: Female
  Weight: .582 kg

DRUGS (20)
  1. CYCLOSPORINE [Suspect]
     Active Substance: CYCLOSPORINE
     Indication: Foetal exposure during pregnancy
     Dosage: MATERNAL EXPOSURE DURING PREGNANCY:35 MG/DAY
     Route: 064
  2. CYCLOSPORINE [Suspect]
     Active Substance: CYCLOSPORINE
     Dosage: UNK
     Route: 064
  3. CYCLOSPORINE [Suspect]
     Active Substance: CYCLOSPORINE
     Dosage: UNK
     Route: 064
  4. CYCLOSPORINE [Suspect]
     Active Substance: CYCLOSPORINE
     Dosage: UNK
     Route: 064
  5. CYCLOSPORINE [Suspect]
     Active Substance: CYCLOSPORINE
     Dosage: UNK
     Route: 064
  6. PREDNISOLONE [Concomitant]
     Active Substance: PREDNISOLONE
     Indication: Foetal exposure during pregnancy
     Dosage: UNK
     Route: 064
  7. PREDNISOLONE [Concomitant]
     Active Substance: PREDNISOLONE
     Dosage: MATERNAL EXPOSURE DURING PREGNANCY: 40 MG
     Route: 064
  8. PREDNISOLONE [Concomitant]
     Active Substance: PREDNISOLONE
     Dosage: MATERNAL EXPOSURE DURING PREGNANCY: 40 MG
     Route: 064
  9. PREDNISOLONE [Concomitant]
     Active Substance: PREDNISOLONE
     Dosage: MATERNAL EXPOSURE DURING PREGNANCY: 40 MG
     Route: 064
  10. PREDNISOLONE [Concomitant]
     Active Substance: PREDNISOLONE
     Dosage: MATERNAL EXPOSURE DURING PREGNANCY: 40 MG
     Route: 064
  11. PREDNISOLONE [Concomitant]
     Active Substance: PREDNISOLONE
     Dosage: MATERNAL EXPOSURE DURING PREGNANCY: 40 MG
     Route: 064
  12. PREDNISOLONE [Concomitant]
     Active Substance: PREDNISOLONE
     Dosage: MATERNAL EXPOSURE DURING PREGNANCY: 40 MG
     Route: 064
  13. PREDNISOLONE [Concomitant]
     Active Substance: PREDNISOLONE
     Dosage: MATERNAL EXPOSURE DURING PREGNANCY: 40 MG
     Route: 064
  14. METHYLPREDNISOLONE [Concomitant]
     Active Substance: METHYLPREDNISOLONE
     Indication: Foetal exposure during pregnancy
     Dosage: MATERNAL EXPOSURE DURING PREGNANCY: 1000 MG/DAY FOR 3 DAYS, ONCE WEEKLY
     Route: 064
  15. METHYLPREDNISOLONE [Concomitant]
     Active Substance: METHYLPREDNISOLONE
     Dosage: MATERNAL EXPOSURE DURING PREGNANCY: 1000 MG/DAY FOR 3 DAYS, ONCE WEEKLY
     Route: 064
  16. METHYLPREDNISOLONE [Concomitant]
     Active Substance: METHYLPREDNISOLONE
     Dosage: MATERNAL EXPOSURE DURING PREGNANCY: 1000 MG/DAY FOR 3 DAYS, ONCE WEEKLY
     Route: 064
  17. METHYLPREDNISOLONE [Concomitant]
     Active Substance: METHYLPREDNISOLONE
     Dosage: MATERNAL EXPOSURE DURING PREGNANCY: 1000 MG/DAY FOR 3 DAYS, ONCE WEEKLY
     Route: 064
  18. METHYLPREDNISOLONE [Concomitant]
     Active Substance: METHYLPREDNISOLONE
     Dosage: MATERNAL EXPOSURE DURING PREGNANCY: 1000 MG/DAY FOR 3 DAYS, ONCE WEEKLY
     Route: 064
  19. METHYLPREDNISOLONE [Concomitant]
     Active Substance: METHYLPREDNISOLONE
     Dosage: MATERNAL EXPOSURE DURING PREGNANCY: 1000 MG/DAY FOR 3 DAYS, ONCE WEEKLY
     Route: 064
  20. METHYLPREDNISOLONE [Concomitant]
     Active Substance: METHYLPREDNISOLONE
     Dosage: MATERNAL EXPOSURE DURING PREGNANCY: 1000 MG/DAY FOR 3 DAYS, ONCE WEEKLY
     Route: 064

REACTIONS (3)
  - Premature baby [Unknown]
  - Low birth weight baby [Unknown]
  - Foetal exposure during pregnancy [Unknown]
